FAERS Safety Report 8232111-7 (Version None)
Quarter: 2012Q1

REPORT INFORMATION
  Report Type: 
  Country: None (occurrence: None)
  Receive Date: 20120323
  Receipt Date: 20120319
  Transmission Date: 20120608
  Serious: Yes (Death, Other)
  Sender: FDA-Public Use
  Company Number: JP-ROCHE-799469

PATIENT
  Sex: Male
  Weight: 67 kg

DRUGS (3)
  1. XELODA [Suspect]
     Indication: RECTAL CANCER METASTATIC
     Route: 048
     Dates: start: 20110712, end: 20110725
  2. OXALIPLATIN [Suspect]
     Indication: RECTAL CANCER METASTATIC
     Route: 041
     Dates: start: 20110712, end: 20110712
  3. AVASTIN [Suspect]
     Indication: RECTAL CANCER RECURRENT
     Route: 041
     Dates: start: 20110712, end: 20110712

REACTIONS (5)
  - PLATELET COUNT DECREASED [None]
  - DIARRHOEA [None]
  - SHOCK [None]
  - DECREASED APPETITE [None]
  - DEHYDRATION [None]
